FAERS Safety Report 5760998-6 (Version None)
Quarter: 2008Q2

REPORT INFORMATION
  Report Type: 
  Country: None (occurrence: None)
  Receive Date: 20080606
  Receipt Date: 20080603
  Transmission Date: 20081010
  Serious: Yes (Hospitalization)
  Sender: FDA-Public Use
  Company Number: GB-ROCHE-568267

PATIENT
  Sex: Male
  Weight: 100 kg

DRUGS (7)
  1. ORLISTAT [Suspect]
     Indication: OBESITY
     Route: 048
     Dates: start: 20071219, end: 20080501
  2. ORLISTAT [Suspect]
     Route: 048
     Dates: start: 20080501
  3. PERINDOPRIL [Concomitant]
     Route: 048
  4. ATORVASTATIN [Concomitant]
     Route: 048
  5. FUROSEMIDE [Concomitant]
     Indication: FLUID RETENTION
     Route: 048
  6. FELODIPINE [Concomitant]
     Route: 048
  7. MIXTARD 30 HM [Concomitant]
     Dosage: REPORTED AS MIXITARD 30 INSULIN
     Route: 058

REACTIONS (1)
  - EXCESSIVE GRANULATION TISSUE [None]
